FAERS Safety Report 5394857-8 (Version None)
Quarter: 2007Q3

REPORT INFORMATION
  Report Type: 
  Country: None (occurrence: None)
  Receive Date: 20070720
  Receipt Date: 20070706
  Transmission Date: 20080115
  Serious: Yes (Hospitalization)
  Sender: FDA-Public Use
  Company Number: VISP-NO-0707S-0298

PATIENT
  Sex: Female

DRUGS (1)
  1. VISIPAQUE [Suspect]
     Indication: DRUG USE FOR UNKNOWN INDICATION
     Dosage: SINGLE DOSE, I.V.
     Route: 042
     Dates: start: 20070501, end: 20070501

REACTIONS (5)
  - DRY MOUTH [None]
  - MENTAL IMPAIRMENT [None]
  - OCULAR ICTERUS [None]
  - PHARYNGEAL OEDEMA [None]
  - SPEECH DISORDER [None]
